FAERS Safety Report 7414247-3 (Version None)
Quarter: 2011Q2

REPORT INFORMATION
  Report Type: 
  Country: None (occurrence: None)
  Receive Date: 20110411
  Receipt Date: 20110411
  Transmission Date: 20111010
  Serious: No
  Sender: FDA-Public Use
  Company Number: None

PATIENT
  Age: 35 Year
  Sex: Female

DRUGS (1)
  1. REMICADE [Suspect]
     Dates: start: 20100311, end: 20100422

REACTIONS (6)
  - HEPATIC STEATOSIS [None]
  - HEPATITIS CHOLESTATIC [None]
  - THYROID NEOPLASM [None]
  - REFUSAL OF TREATMENT BY PATIENT [None]
  - LIVER INJURY [None]
  - HEPATIC FIBROSIS [None]
